FAERS Safety Report 8397054-7 (Version None)
Quarter: 2012Q2

REPORT INFORMATION
  Report Type: 
  Country: None (occurrence: None)
  Receive Date: 20120530
  Receipt Date: 20120523
  Transmission Date: 20120825
  Serious: Yes (Other)
  Sender: FDA-Public Use
  Company Number: FR-UCBSA-056543

PATIENT

DRUGS (2)
  1. CIMZIA [Suspect]
     Route: 058
  2. NO CONCOMITANT TREATMENT [Concomitant]

REACTIONS (1)
  - CYTOLYTIC HEPATITIS [None]
